FAERS Safety Report 10146050 (Version 2)
Quarter: 2014Q2

REPORT INFORMATION
  Report Type: Spontaneous
  Country: CA (occurrence: CA)
  Receive Date: 20140501
  Receipt Date: 20140501
  Transmission Date: 20141212
  Serious: Yes (Other)
  Sender: FDA-Public Use
  Company Number: CA-ASTELLAS-2014US002302

PATIENT
  Age: 74 Year
  Sex: Male

DRUGS (2)
  1. MYRBETRIQ [Suspect]
     Indication: URINARY INCONTINENCE
     Route: 048
     Dates: start: 20140220
  2. MYRBETRIQ [Suspect]
     Dosage: 2 PILLS, ONCE DAILY
     Route: 048

REACTIONS (5)
  - Dysuria [Unknown]
  - Diarrhoea [Unknown]
  - Headache [Unknown]
  - Initial insomnia [Unknown]
  - Skin fissures [Unknown]
